FAERS Safety Report 11877588 (Version 2)
Quarter: 2016Q1

REPORT INFORMATION
  Report Type: Other
  Country: GB (occurrence: GB)
  Receive Date: 20151230
  Receipt Date: 20160122
  Transmission Date: 20160526
  Serious: Yes (Other)
  Sender: FDA-Public Use
  Company Number: GB-MYLANLABS-2015M1045733

PATIENT

DRUGS (11)
  1. ASPIRIN                            /00002701/ [Concomitant]
     Active Substance: ASPIRIN
     Dosage: 1 DF, QD
     Dates: start: 20150428
  2. BISOPROLOL [Concomitant]
     Active Substance: BISOPROLOL
     Dosage: 1 DF, QD
     Dates: start: 20150428
  3. COCODAMOL [Concomitant]
     Active Substance: ACETAMINOPHEN\CODEINE PHOSPHATE
     Dosage: UNK (TAKE 1 OR 2 4 TIMES A DAY)
     Dates: start: 20150428
  4. DULOXETINE. [Concomitant]
     Active Substance: DULOXETINE
     Dosage: 1 DF, BID
     Dates: start: 20151123
  5. TAMSULOSIN HYDROCHLORIDE. [Concomitant]
     Active Substance: TAMSULOSIN HYDROCHLORIDE
     Dosage: 1 DF, QD
     Dates: start: 20150428
  6. LIDOCAINE. [Concomitant]
     Active Substance: LIDOCAINE
     Dosage: 1 DF, QD
     Dates: start: 20151123, end: 20151124
  7. DEPO-MEDRONE [Concomitant]
     Active Substance: METHYLPREDNISOLONE
     Dosage: UNK
     Dates: start: 20151123, end: 20151124
  8. AMOXICILLIN. [Concomitant]
     Active Substance: AMOXICILLIN
     Dosage: 1 DF, QD
     Dates: start: 20151010, end: 20151015
  9. RAMIPRIL. [Concomitant]
     Active Substance: RAMIPRIL
     Dosage: 1 DF, QD
     Dates: start: 20150428
  10. ATORVASTATIN [Suspect]
     Active Substance: ATORVASTATIN
     Dosage: 80 MG, UNK
     Route: 048
     Dates: start: 20141017, end: 20151130
  11. ZOLADEX [Concomitant]
     Active Substance: GOSERELIN ACETATE
     Dosage: UNK
     Dates: start: 20151118

REACTIONS (1)
  - Paraesthesia [Recovered/Resolved]

NARRATIVE: CASE EVENT DATE: 20141022
